FAERS Safety Report 8262038-6 (Version None)
Quarter: 2012Q2

REPORT INFORMATION
  Report Type: 
  Country: None (occurrence: None)
  Receive Date: 20120405
  Receipt Date: 20120326
  Transmission Date: 20120825
  Serious: Yes (Hospitalization)
  Sender: FDA-Public Use
  Company Number: ES-SANOFI-AVENTIS-2012SA020717

PATIENT
  Age: 62 Year
  Sex: Male
  Weight: 87 kg

DRUGS (15)
  1. CARBOPLATIN [Suspect]
     Indication: NON-SMALL CELL LUNG CANCER
     Route: 065
     Dates: start: 20120315, end: 20120315
  2. LISINOPRIL [Concomitant]
  3. OMEPRAZOLE [Concomitant]
  4. CISPLATIN [Suspect]
     Indication: NON-SMALL CELL LUNG CANCER
     Route: 065
     Dates: start: 20120224, end: 20120224
  5. CISPLATIN [Suspect]
     Route: 065
     Dates: start: 20120215, end: 20120215
  6. CLOPIDOGREL [Concomitant]
  7. BISOPROLOL FUMARATE [Concomitant]
  8. ASPIRIN [Concomitant]
  9. DOCETAXEL [Suspect]
     Indication: NON-SMALL CELL LUNG CANCER
     Route: 065
     Dates: start: 20120224, end: 20120224
  10. ATORVASTATIN CALCIUM [Concomitant]
  11. FUROSEMIDE [Concomitant]
  12. AMIODARONE HCL [Concomitant]
  13. DOCETAXEL [Suspect]
     Route: 065
     Dates: start: 20120315, end: 20120315
  14. SINTROM [Concomitant]
  15. EPLERENONE [Concomitant]

REACTIONS (2)
  - HYPONATRAEMIA [None]
  - HYPOKALAEMIA [None]
